FAERS Safety Report 10048272 (Version 1)
Quarter: 2014Q1

REPORT INFORMATION
  Report Type: Spontaneous
  Country: US (occurrence: US)
  Receive Date: 20140331
  Receipt Date: 20140331
  Transmission Date: 20141002
  Serious: No
  Sender: FDA-Public Use
  Company Number: US-PFIZER INC-2014087393

PATIENT
  Age: 61 Year
  Sex: Male
  Weight: 126.1 kg

DRUGS (2)
  1. ATORVASTATIN CALCIUM [Suspect]
     Dosage: UNK, SINGLE
     Dates: start: 201401, end: 201401
  2. GLUMETZA [Concomitant]
     Indication: DIABETES MELLITUS
     Dosage: 500 MG, 4X/DAY

REACTIONS (1)
  - Drug ineffective [Unknown]
